FAERS Safety Report 10178239 (Version 2)
Quarter: 2014Q2

REPORT INFORMATION
  Report Type: Spontaneous
  Country: JP (occurrence: JP)
  Receive Date: 20140519
  Receipt Date: 20140523
  Transmission Date: 20141212
  Serious: Yes (Other)
  Sender: FDA-Public Use
  Company Number: JP-BRISTOL-MYERS SQUIBB COMPANY-20751913

PATIENT
  Age: 9 Decade
  Sex: 0

DRUGS (1)
  1. ELIQUIS [Suspect]
     Dosage: 1 DF: 1 TABLET
     Route: 048

REACTIONS (2)
  - Dyspnoea [Unknown]
  - Feeling hot [Unknown]
